FAERS Safety Report 10207906 (Version 1)
Quarter: 2014Q2

REPORT INFORMATION
  Report Type: Spontaneous
  Country: US (occurrence: US)
  Receive Date: 20140530
  Receipt Date: 20140530
  Transmission Date: 20141212
  Serious: No
  Sender: FDA-Public Use
  Company Number: US-GLAXOSMITHKLINE-A1064354A

PATIENT
  Age: 31 Year
  Sex: Female

DRUGS (2)
  1. VENTOLIN [Suspect]
     Indication: ASTHMA
     Dosage: 1PUFF AS REQUIRED
     Route: 055
  2. BIRTH CONTROL [Concomitant]

REACTIONS (5)
  - Influenza like illness [Recovering/Resolving]
  - Oropharyngeal pain [Unknown]
  - Eye pain [Unknown]
  - Ear pain [Unknown]
  - Inhalation therapy [Unknown]
